FAERS Safety Report 10079870 (Version 2)
Quarter: 2014Q2

REPORT INFORMATION
  Report Type: Report from Study
  Country: FR (occurrence: FR)
  Receive Date: 20140415
  Receipt Date: 20140415
  Transmission Date: 20141212
  Serious: Yes (Death, Hospitalization, Other)
  Sender: FDA-Public Use
  Company Number: FR-BRISTOL-MYERS SQUIBB COMPANY-17101445

PATIENT
  Age: 84 Year
  Sex: Male

DRUGS (16)
  1. DASATINIB [Suspect]
     Indication: PANCREATIC CARCINOMA
     Dosage: INTER-9JUL12
     Route: 048
     Dates: start: 20120319
  2. GEMCITABINE [Suspect]
     Indication: PANCREATIC CARCINOMA
     Dosage: 1000MG/M2-QW-19MAR12-ONG?INTER ON 9JUL12
     Route: 042
     Dates: start: 20120319
  3. LASILIX [Suspect]
     Indication: OEDEMA
     Dosage: 1DF=40 TO 120MG, ORAL
     Route: 048
     Dates: start: 20120529, end: 20120810
  4. SOLU-MEDROL [Concomitant]
     Dates: start: 20120319
  5. ERYTHROPOIETIN [Concomitant]
     Dates: start: 20120430
  6. CLINUTREN [Concomitant]
     Dates: start: 20120125
  7. OMEPRAZOLE [Concomitant]
     Dates: start: 20120402, end: 20120810
  8. BICARBONATE [Concomitant]
     Dates: start: 20120326
  9. NEORECORMON [Concomitant]
     Indication: ANAEMIA
     Dates: start: 20120430, end: 20120710
  10. VOGALENE [Concomitant]
     Indication: PROPHYLAXIS OF NAUSEA AND VOMITING
     Route: 048
     Dates: start: 20120529, end: 20120810
  11. ALDACTONE [Concomitant]
     Indication: OEDEMA
     Route: 048
     Dates: start: 20120611, end: 20120810
  12. SCOPODERM [Concomitant]
     Indication: VOMITING
     Route: 062
     Dates: start: 20120625, end: 20120810
  13. MOTILIUM [Concomitant]
     Indication: NAUSEA
     Route: 048
     Dates: start: 20120405, end: 20120810
  14. MOTILIUM [Concomitant]
     Indication: VOMITING
     Route: 048
     Dates: start: 20120405, end: 20120810
  15. SOLUPRED [Concomitant]
     Dosage: 20MG*3 PRIOR TO CHEMOTHERAPY.
  16. DAFALGAN [Concomitant]

REACTIONS (5)
  - Cardiac failure [Fatal]
  - Lung disorder [Not Recovered/Not Resolved]
  - Osteonecrosis [Not Recovered/Not Resolved]
  - Hypokalaemia [Recovered/Resolved]
  - Renal failure acute [Recovered/Resolved]
